FAERS Safety Report 25977949 (Version 1)
Quarter: 2025Q4

REPORT INFORMATION
  Report Type: Spontaneous
  Country: CN (occurrence: CN)
  Receive Date: 20251030
  Receipt Date: 20251030
  Transmission Date: 20260117
  Serious: Yes (Other)
  Sender: JOHNSON AND JOHNSON
  Company Number: CN-MLMSERVICE-20251017-PI681057-00267-1

PATIENT
  Age: 27 Year
  Sex: Female

DRUGS (3)
  1. SPORANOX [Suspect]
     Active Substance: ITRACONAZOLE
     Indication: Product used for unknown indication
     Route: 048
  2. POVIDONE-IODINE [Suspect]
     Active Substance: POVIDONE-IODINE
     Indication: Irrigation therapy
     Route: 065
  3. LORATADINE [Suspect]
     Active Substance: LORATADINE
     Indication: Hypersensitivity
     Route: 048

REACTIONS (2)
  - Syncope [Unknown]
  - Rash [Unknown]
